FAERS Safety Report 24541315 (Version 2)
Quarter: 2024Q4

REPORT INFORMATION
  Report Type: Spontaneous
  Country: FR (occurrence: FR)
  Receive Date: 20241023
  Receipt Date: 20241118
  Transmission Date: 20250115
  Serious: Yes (Hospitalization)
  Sender: SANDOZ
  Company Number: None

PATIENT
  Age: 70 Year
  Sex: Male

DRUGS (19)
  1. BRINTELLIX [Suspect]
     Active Substance: VORTIOXETINE HYDROBROMIDE
     Indication: Psychotic disorder
     Dosage: 1 DF, QD (BRINTELLIX 15MG EVERY MORNING.)
     Route: 048
     Dates: start: 20240120, end: 20240913
  2. CEFEPIME [Suspect]
     Active Substance: CEFEPIME HYDROCHLORIDE
     Indication: Antibiotic prophylaxis
     Dosage: 400.000MG QD
     Route: 042
     Dates: start: 20240908, end: 20240913
  3. TROPATEPINE HYDROCHLORIDE [Suspect]
     Active Substance: TROPATEPINE HYDROCHLORIDE
     Indication: Prophylaxis
     Dosage: 2.000DF QD
     Route: 048
     Dates: start: 20220920, end: 20240913
  4. LOXAPINE [Suspect]
     Active Substance: LOXAPINE
     Indication: Psychotic disorder
     Dosage: 200.000MG QD
     Route: 048
     Dates: start: 20220920, end: 20240913
  5. LOXAPINE [Suspect]
     Active Substance: LOXAPINE
     Dosage: LOXAPAC 25MG MIDI
     Route: 065
  6. LOXAPINE [Suspect]
     Active Substance: LOXAPINE
     Dosage: LOXAPAC 50 MG MORNING, NOON AND EVENING.
     Route: 065
  7. ACETAMINOPHEN [Suspect]
     Active Substance: ACETAMINOPHEN
     Indication: Pyrexia
     Dosage: 3.000G QD
     Route: 048
     Dates: start: 20240908, end: 20240913
  8. ACETAMINOPHEN [Suspect]
     Active Substance: ACETAMINOPHEN
     Dosage: 500.000MG QD
     Route: 048
     Dates: start: 20240915, end: 20240916
  9. PRAVASTATIN [Suspect]
     Active Substance: PRAVASTATIN
     Indication: Cardiovascular event prophylaxis
     Dosage: 20.000MG QD
     Route: 048
     Dates: start: 20170811, end: 20240913
  10. RISPERDAL [Suspect]
     Active Substance: RISPERIDONE
     Dosage: 1 MG
     Route: 065
  11. RISPERDAL [Suspect]
     Active Substance: RISPERIDONE
     Dosage: 2 MG
     Route: 065
  12. RISPERDAL [Suspect]
     Active Substance: RISPERIDONE
     Dosage: 3 MG
     Route: 065
  13. RISPERDAL [Suspect]
     Active Substance: RISPERIDONE
     Indication: Psychotic disorder
     Dosage: 6 MG, QD
     Route: 048
     Dates: start: 20220920, end: 20240913
  14. ABILIFY MAINTENA [Concomitant]
     Active Substance: ARIPIPRAZOLE
     Indication: Product used for unknown indication
     Dosage: ABILIFY 400 MG:1 IM EVERY 28 DAYS.
     Route: 030
     Dates: start: 20230822
  15. LACTULOSE [Concomitant]
     Active Substance: LACTULOSE
     Indication: Product used for unknown indication
     Dosage: 10G/15ML, 1 SACHET MORNING, NOON, EVENING.
     Route: 065
  16. MINERAL OIL [Concomitant]
     Active Substance: MINERAL OIL
     Indication: Product used for unknown indication
     Dosage: LANSOYL 1 DOSE IN THE EVENING.
     Route: 065
  17. PRAZEPAM [Concomitant]
     Active Substance: PRAZEPAM
     Dosage: PRAZEPAM 10 MG MORNING, NOON, EVENING
     Route: 065
  18. PRAZEPAM [Concomitant]
     Active Substance: PRAZEPAM
     Indication: Product used for unknown indication
     Dosage: 40.000MG QD
     Route: 048
     Dates: start: 20231227
  19. ANETHOLTRITHION [Concomitant]
     Active Substance: ANETHOLTRITHION
     Indication: Product used for unknown indication
     Dosage: SULFARLEM 25MG, MORNING, NOON, EVENING.
     Route: 065

REACTIONS (3)
  - Acute kidney injury [Not Recovered/Not Resolved]
  - Rhabdomyolysis [Recovered/Resolved]
  - Hepatic cytolysis [Recovered/Resolved]

NARRATIVE: CASE EVENT DATE: 20240913
